FAERS Safety Report 9460070 (Version 1)
Quarter: 2013Q3

REPORT INFORMATION
  Report Type: Spontaneous
  Country: US (occurrence: None)
  Receive Date: 20130814
  Receipt Date: 20130814
  Transmission Date: 20140515
  Serious: Yes (Hospitalization)
  Sender: FDA-Public Use
  Company Number: None

PATIENT
  Sex: Female
  Weight: 109.1 kg

DRUGS (1)
  1. OCTREOTIDE [Suspect]
     Indication: DIARRHOEA
     Dosage: 100MCG/ML 4 TIMES DAY SQ

REACTIONS (3)
  - Anaphylactic reaction [None]
  - Pulmonary embolism [None]
  - Deep vein thrombosis [None]
